FAERS Safety Report 8824523 (Version 1)
Quarter: 2012Q4

REPORT INFORMATION
  Report Type: 
  Country: GB (occurrence: GB)
  Receive Date: 20121004
  Receipt Date: 20121004
  Transmission Date: 20130627
  Serious: Yes (Disabling, Other)
  Sender: FDA-Public Use
  Company Number: GB-UCBSA-067987

PATIENT
  Age: 42 Year
  Sex: Female
  Weight: 123 kg

DRUGS (14)
  1. ALENDRONIC ACID [Concomitant]
  2. AMITRIPTYLINE [Concomitant]
  3. BACLOFEN [Concomitant]
  4. CALCICHEW [Concomitant]
  5. ETORICOXIB [Concomitant]
  6. GAVISCON [Concomitant]
  7. HYDROXYCHLOROQUINE [Concomitant]
  8. METHOTREXATE [Concomitant]
  9. PARACETAMOL [Concomitant]
  10. CIMZIA [Suspect]
     Indication: RHEUMATOID ARTHRITIS
     Route: 058
     Dates: start: 20120801, end: 20120828
  11. PREDNISOLONE [Concomitant]
  12. PREDNISOLONE [Concomitant]
     Dates: start: 2012
  13. FOLIC ACID [Concomitant]
  14. OMEPRAZOLE [Concomitant]

REACTIONS (4)
  - Dyspnoea [Recovered/Resolved]
  - Fatigue [Recovered/Resolved]
  - Nausea [Recovered/Resolved]
  - Musculoskeletal stiffness [Recovered/Resolved]
